FAERS Safety Report 4381266-3 (Version None)
Quarter: 2004Q2

REPORT INFORMATION
  Report Type: 
  Country: None (occurrence: None)
  Receive Date: 20040617
  Receipt Date: 20040617
  Transmission Date: 20050107
  Serious: No
  Sender: FDA-Public Use
  Company Number: None

PATIENT
  Age: 50 Year
  Sex: Male
  Weight: 81.6475 kg

DRUGS (1)
  1. LIPITOR [Suspect]
     Dosage: 20 MG DAILY

REACTIONS (8)
  - ARTHRALGIA [None]
  - ASTHENIA [None]
  - CHROMATURIA [None]
  - FATIGUE [None]
  - INSOMNIA [None]
  - LOSS OF LIBIDO [None]
  - MUSCLE SPASMS [None]
  - MYALGIA [None]
